FAERS Safety Report 5328285-8 (Version None)
Quarter: 2007Q2

REPORT INFORMATION
  Report Type: 
  Country: None (occurrence: None)
  Receive Date: 20070515
  Receipt Date: 20070515
  Transmission Date: 20071010
  Serious: Yes (Life-Threatening)
  Sender: FDA-Public Use
  Company Number: None

PATIENT
  Age: 55 Year
  Sex: Female
  Weight: 98.8842 kg

DRUGS (11)
  1. SOLU-MEDROL [Suspect]
     Indication: MULTIPLE SCLEROSIS
     Dosage: 500MG EVERY 12 HOURS IV
     Route: 042
     Dates: start: 20070508, end: 20070510
  2. SOLU-MEDROL [Suspect]
  3. LORTAB [Concomitant]
  4. PLAVIX [Concomitant]
  5. CLONIDINE [Concomitant]
  6. LISINOPRIL [Concomitant]
  7. LIPITOR [Concomitant]
  8. PREMARIN [Concomitant]
  9. HUMULIN R [Concomitant]
  10. METFORMIN HCL [Concomitant]
  11. PRILOSEC [Concomitant]

REACTIONS (3)
  - ASTHENIA [None]
  - BLOOD POTASSIUM DECREASED [None]
  - MUSCLE SPASMS [None]
